FAERS Safety Report 25402021 (Version 1)
Quarter: 2025Q2

REPORT INFORMATION
  Report Type: Other
  Country: GB (occurrence: GB)
  Receive Date: 20250605
  Receipt Date: 20250605
  Transmission Date: 20250717
  Serious: Yes (Hospitalization)
  Sender: EMD SERONO INC
  Company Number: GB-Merck Healthcare KGaA-2025027304

PATIENT
  Age: 75 Year
  Sex: Male

DRUGS (2)
  1. AVELUMAB [Suspect]
     Active Substance: AVELUMAB
     Indication: Metastatic renal cell carcinoma
  2. AXITINIB [Concomitant]
     Active Substance: AXITINIB
     Indication: Metastatic renal cell carcinoma

REACTIONS (1)
  - Ocular myasthenia [Recovering/Resolving]
